FAERS Safety Report 6274212-9 (Version None)
Quarter: 2009Q3

REPORT INFORMATION
  Report Type: 
  Country: None (occurrence: None)
  Receive Date: 20090720
  Receipt Date: 20090716
  Transmission Date: 20100115
  Serious: Yes (Hospitalization)
  Sender: FDA-Public Use
  Company Number: FR-BRISTOL-MYERS SQUIBB COMPANY-14659148

PATIENT
  Age: 67 Year
  Sex: Male
  Weight: 65 kg

DRUGS (3)
  1. ABILIFY [Suspect]
     Indication: DEPRESSION
     Dates: start: 20090430
  2. ANAFRANIL [Concomitant]
     Dosage: 1DF-1TABS:75MG
     Route: 048
  3. NORDAZ [Concomitant]
     Indication: DEPRESSION
     Dosage: 1DF-1TABS:15MG
     Route: 048
     Dates: start: 20000101

REACTIONS (1)
  - PULMONARY EMBOLISM [None]
